FAERS Safety Report 6251112-1 (Version None)
Quarter: 2009Q2

REPORT INFORMATION
  Report Type: 
  Country: None (occurrence: None)
  Receive Date: 20090630
  Receipt Date: 20090619
  Transmission Date: 20091009
  Serious: Yes (Hospitalization, Other)
  Sender: FDA-Public Use
  Company Number: US-AMGEN-STX352510

PATIENT
  Sex: Male

DRUGS (2)
  1. ENBREL [Suspect]
     Indication: PSORIATIC ARTHROPATHY
     Route: 058
  2. ENBREL [Suspect]
     Indication: PSORIASIS

REACTIONS (8)
  - ACTINIC KERATOSIS [None]
  - ARTHRALGIA [None]
  - INJECTION SITE PAIN [None]
  - JOINT ARTHROPLASTY [None]
  - MALIGNANT MELANOMA [None]
  - PNEUMONIA [None]
  - SHOULDER OPERATION [None]
  - SMALL INTESTINAL OBSTRUCTION [None]
